FAERS Safety Report 7586094-3 (Version None)
Quarter: 2011Q3

REPORT INFORMATION
  Report Type: 
  Country: None (occurrence: None)
  Receive Date: 20110701
  Receipt Date: 20110621
  Transmission Date: 20111222
  Serious: Yes (Hospitalization)
  Sender: FDA-Public Use
  Company Number: US-AMGEN-USASP2011031836

PATIENT
  Age: 34 Year
  Sex: Female

DRUGS (1)
  1. ENBREL [Suspect]
     Indication: ANKYLOSING SPONDYLITIS
     Dosage: 50 MG, QWK
     Dates: start: 20040101, end: 20110226

REACTIONS (9)
  - ANKYLOSING SPONDYLITIS [None]
  - MULTIPLE FRACTURES [None]
  - HEAD INJURY [None]
  - JOINT INJURY [None]
  - LIMB CRUSHING INJURY [None]
  - ROAD TRAFFIC ACCIDENT [None]
  - ARTHRITIS INFECTIVE [None]
  - STAPHYLOCOCCAL INFECTION [None]
  - SINUSITIS [None]
